FAERS Safety Report 21186346 (Version 2)
Quarter: 2022Q3

REPORT INFORMATION
  Report Type: Spontaneous
  Country: FR (occurrence: FR)
  Receive Date: 20220808
  Receipt Date: 20220831
  Transmission Date: 20221026
  Serious: Yes (Hospitalization)
  Sender: FDA-Public Use
  Company Number: None

PATIENT
  Age: 17 Year
  Sex: Female

DRUGS (1)
  1. ACETAMINOPHEN [Suspect]
     Active Substance: ACETAMINOPHEN
     Indication: Headache
     Dosage: 8 G (TOTAL) (4 GR A 6H00 - 4 GR A 13H00)
     Route: 065
     Dates: start: 20220622, end: 20220622

REACTIONS (4)
  - Acute kidney injury [Recovering/Resolving]
  - Abdominal pain [Recovered/Resolved]
  - Hepatic cytolysis [Recovered/Resolved]
  - Vomiting [Recovered/Resolved]

NARRATIVE: CASE EVENT DATE: 20220622
